FAERS Safety Report 23774386 (Version 1)
Quarter: 2024Q2

REPORT INFORMATION
  Report Type: Spontaneous
  Country: CN (occurrence: CN)
  Receive Date: 20240423
  Receipt Date: 20240423
  Transmission Date: 20240716
  Serious: Yes (Other)
  Sender: FDA-Public Use
  Company Number: None

PATIENT
  Age: 31 Year
  Sex: Male
  Weight: 110 kg

DRUGS (3)
  1. MANNITOL [Suspect]
     Active Substance: MANNITOL
     Indication: Cerebral haemorrhage
     Dosage: 125 ML, FOUR TIMES DAILY, DOSAGE FORM: INJECTION
     Route: 041
     Dates: start: 20240204, end: 20240224
  2. MANNITOL [Suspect]
     Active Substance: MANNITOL
     Indication: Dehydration
  3. MANNITOL [Suspect]
     Active Substance: MANNITOL
     Indication: Brain oedema

REACTIONS (5)
  - Renal failure [Recovered/Resolved]
  - Blood urea increased [Unknown]
  - Blood creatinine increased [Unknown]
  - Cystatin C increased [Unknown]
  - Glomerular filtration rate decreased [Unknown]

NARRATIVE: CASE EVENT DATE: 20240205
